FAERS Safety Report 7494354-X (Version None)
Quarter: 2011Q2

REPORT INFORMATION
  Report Type: 
  Country: None (occurrence: None)
  Receive Date: 20110520
  Receipt Date: 20110518
  Transmission Date: 20111010
  Serious: Yes (Hospitalization)
  Sender: FDA-Public Use
  Company Number: US-MERCK-1101USA01052

PATIENT
  Age: 61 Year
  Sex: Female
  Weight: 63 kg

DRUGS (6)
  1. FOSAMAX [Suspect]
     Indication: OSTEOPENIA
     Route: 048
     Dates: start: 20030801, end: 20090101
  2. FOSAMAX PLUS D [Suspect]
     Indication: OSTEOPENIA
     Route: 048
  3. FOSAMAX PLUS D [Suspect]
     Indication: OSTEOARTHRITIS
     Route: 048
  4. FOSAMAX [Suspect]
     Indication: OSTEOARTHRITIS
     Route: 048
     Dates: start: 20030801, end: 20090101
  5. FOSAMAX [Suspect]
     Route: 048
  6. FOSAMAX [Suspect]
     Route: 048

REACTIONS (45)
  - FALL [None]
  - BONE DENSITY DECREASED [None]
  - HEADACHE [None]
  - STOMATITIS [None]
  - PAIN IN EXTREMITY [None]
  - DIZZINESS [None]
  - HYPOAESTHESIA [None]
  - FATIGUE [None]
  - ADVERSE DRUG REACTION [None]
  - UMBILICAL HERNIA [None]
  - MASS [None]
  - ROTATOR CUFF SYNDROME [None]
  - PAIN [None]
  - GASTROENTERITIS [None]
  - MUSCLE STRAIN [None]
  - SINUS DISORDER [None]
  - REPETITIVE STRAIN INJURY [None]
  - DEPRESSION [None]
  - DYSPHAGIA [None]
  - ATROPHY [None]
  - IMPAIRED HEALING [None]
  - ORAL TORUS [None]
  - LUMBAR RADICULOPATHY [None]
  - DYSLIPIDAEMIA [None]
  - MUSCULOSKELETAL PAIN [None]
  - RHEUMATOID ARTHRITIS [None]
  - MUSCLE ATROPHY [None]
  - BACK PAIN [None]
  - INTERVERTEBRAL DISC DISORDER [None]
  - BURSITIS [None]
  - INTERVERTEBRAL DISC DEGENERATION [None]
  - FEMUR FRACTURE [None]
  - HAEMORRHAGIC ANAEMIA [None]
  - RED BLOOD CELLS URINE [None]
  - ABDOMINAL HERNIA [None]
  - HAEMORRHOIDS [None]
  - ROAD TRAFFIC ACCIDENT [None]
  - HYPOTHYROIDISM [None]
  - ARTHRITIS [None]
  - SEBORRHOEIC KERATOSIS [None]
  - RECTAL HAEMORRHAGE [None]
  - STRESS [None]
  - JOINT INJURY [None]
  - ARTHROPATHY [None]
  - CONSTIPATION [None]
